FAERS Safety Report 14852373 (Version 1)
Quarter: 2018Q2

REPORT INFORMATION
  Report Type: Spontaneous
  Country: US (occurrence: US)
  Receive Date: 20180507
  Receipt Date: 20180507
  Transmission Date: 20180711
  Serious: No
  Sender: FDA-Public Use
  Company Number: US-PFIZER INC-2018184151

PATIENT
  Age: 67 Year
  Sex: Male
  Weight: 88 kg

DRUGS (9)
  1. PRAVASTATIN. [Concomitant]
     Active Substance: PRAVASTATIN
     Indication: BLOOD CHOLESTEROL
  2. KRILL OIL [Concomitant]
     Active Substance: DIETARY SUPPLEMENT
  3. VITAMIN E /00110501/ [Concomitant]
     Active Substance: TOCOPHEROL
  4. ADVIL COLD AND SINUS [Suspect]
     Active Substance: IBUPROFEN\PSEUDOEPHEDRINE HYDROCHLORIDE
     Indication: NASAL DISORDER
  5. OMEPRAZOLE. [Concomitant]
     Active Substance: OMEPRAZOLE
     Indication: ABDOMINAL DISCOMFORT
  6. ADVIL COLD AND SINUS [Suspect]
     Active Substance: IBUPROFEN\PSEUDOEPHEDRINE HYDROCHLORIDE
     Indication: SINUS DISORDER
     Dosage: 3 DF, 1X/DAY (2 TABLETS EACH MORNING AND ONE TABLET EACH AFTERNOON)
     Route: 048
     Dates: start: 20180428, end: 20180501
  7. LISINOPRIL. [Concomitant]
     Active Substance: LISINOPRIL
     Indication: BLOOD PRESSURE MEASUREMENT
  8. DHEA [Concomitant]
     Active Substance: PRASTERONE
  9. DAPSONE. [Concomitant]
     Active Substance: DAPSONE
     Indication: GLUTEN SENSITIVITY

REACTIONS (2)
  - Pruritus [Unknown]
  - Blister [Unknown]

NARRATIVE: CASE EVENT DATE: 20180428
